FAERS Safety Report 4779951-4 (Version None)
Quarter: 2005Q3

REPORT INFORMATION
  Report Type: 
  Country: None (occurrence: None)
  Receive Date: 20050927
  Receipt Date: 20050926
  Transmission Date: 20060218
  Serious: Yes (Other)
  Sender: FDA-Public Use
  Company Number: US-GLAXOSMITHKLINE-A0575924A

PATIENT
  Age: 30 Year
  Sex: Female

DRUGS (2)
  1. WELLBUTRIN [Suspect]
     Dosage: 25MG THREE TIMES PER DAY
     Route: 048
     Dates: start: 20040101, end: 20050601
  2. NO CONCURRENT MEDICATION [Concomitant]

REACTIONS (3)
  - FEMALE ORGASMIC DISORDER [None]
  - HALLUCINATION, AUDITORY [None]
  - LIBIDO DECREASED [None]
